FAERS Safety Report 4484202-4 (Version None)
Quarter: 2004Q3

REPORT INFORMATION
  Report Type: 
  Country: None (occurrence: None)
  Receive Date: 20040921
  Receipt Date: 20040211
  Transmission Date: 20050211
  Serious: Yes (Hospitalization)
  Sender: FDA-Public Use
  Company Number: 163-20785-04020320

PATIENT
  Age: 68 Year
  Sex: Male
  Weight: 86.1834 kg

DRUGS (1)
  1. THALOMID [Suspect]
     Indication: PULMONARY FIBROSIS
     Dosage: ORAL
     Route: 048
     Dates: start: 20031120, end: 20040104

REACTIONS (1)
  - PULMONARY EMBOLISM [None]
